FAERS Safety Report 20651140 (Version 1)
Quarter: 2022Q1

REPORT INFORMATION
  Report Type: Spontaneous
  Country: US (occurrence: US)
  Receive Date: 20220329
  Receipt Date: 20220329
  Transmission Date: 20220424
  Serious: Yes (Other)
  Sender: FDA-Public Use
  Company Number: US-BRISTOL-MYERS SQUIBB COMPANY-2022-011701

PATIENT
  Age: 21 Year
  Sex: Female

DRUGS (3)
  1. ELIQUIS [Suspect]
     Active Substance: APIXABAN
     Indication: Embolism venous
     Dosage: 10 MG DAILY
     Route: 065
     Dates: start: 202111
  2. ELIQUIS [Suspect]
     Active Substance: APIXABAN
     Indication: Pulmonary embolism
  3. PFIZER-BIONTECH COVID-19 VACCINE [Suspect]
     Active Substance: TOZINAMERAN
     Indication: COVID-19 immunisation
     Route: 065
     Dates: start: 202105, end: 202105

REACTIONS (2)
  - Thrombosis [Unknown]
  - SARS-CoV-2 test positive [Unknown]

NARRATIVE: CASE EVENT DATE: 20220101
